FAERS Safety Report 7862586-4 (Version None)
Quarter: 2011Q4

REPORT INFORMATION
  Report Type: 
  Country: None (occurrence: None)
  Receive Date: 20111027
  Receipt Date: 20101109
  Transmission Date: 20120403
  Serious: No
  Sender: FDA-Public Use
  Company Number: US-AMGEN-USASP2010004265

PATIENT
  Age: 63 Year
  Sex: Female

DRUGS (3)
  1. LIPITOR [Concomitant]
     Dosage: 10 MG, UNK
  2. CELEBREX [Concomitant]
     Dosage: 100 MG, UNK
  3. ENBREL [Suspect]
     Indication: PRODUCT USED FOR UNKNOWN INDICATION
     Dosage: 25 MG, 2 TIMES/WK
     Route: 058

REACTIONS (1)
  - HERPES ZOSTER [None]
